FAERS Safety Report 19221430 (Version 1)
Quarter: 2021Q2

REPORT INFORMATION
  Report Type: Spontaneous
  Country: US (occurrence: US)
  Receive Date: 20210505
  Receipt Date: 20210505
  Transmission Date: 20210717
  Serious: Yes (Other)
  Sender: FDA-Public Use
  Company Number: US-SAGENT PHARMACEUTICALS-2021SAG000840

PATIENT

DRUGS (3)
  1. DOXORUBICIN HCL [Suspect]
     Active Substance: DOXORUBICIN HYDROCHLORIDE
     Indication: PANCREATOBLASTOMA
     Dosage: UNK
  2. ETOPOSIDE. [Suspect]
     Active Substance: ETOPOSIDE
     Indication: PANCREATOBLASTOMA
     Dosage: UNK
  3. CISPLATIN. [Suspect]
     Active Substance: CISPLATIN
     Indication: PANCREATOBLASTOMA
     Dosage: UNK

REACTIONS (9)
  - Tension headache [Unknown]
  - Exposure during pregnancy [Unknown]
  - Tinnitus [Unknown]
  - Hypotension [Unknown]
  - Cardiac murmur [Unknown]
  - Abdominal pain [Unknown]
  - Syncope [Unknown]
  - Nausea [Unknown]
  - Staphylococcal infection [Recovered/Resolved]
